FAERS Safety Report 9378672 (Version 1)
Quarter: 2013Q2

REPORT INFORMATION
  Report Type: Spontaneous
  Country: DE (occurrence: None)
  Receive Date: 20130626
  Receipt Date: 20130626
  Transmission Date: 20140414
  Serious: Yes (Hospitalization)
  Sender: FDA-Public Use
  Company Number: 2135225-2013-00077

PATIENT
  Sex: Female

DRUGS (1)
  1. AETHOXYSKLEROL [Suspect]
     Indication: VARICOSE VEIN
     Route: 042

REACTIONS (1)
  - Cerebrovascular accident [None]
